FAERS Safety Report 23363080 (Version 2)
Quarter: 2024Q1

REPORT INFORMATION
  Report Type: Spontaneous
  Country: US (occurrence: US)
  Receive Date: 20240103
  Receipt Date: 20240220
  Transmission Date: 20240410
  Serious: No
  Sender: FDA-Public Use
  Company Number: US-PFIZER INC-202300455883

PATIENT
  Age: 62 Year
  Sex: Female
  Weight: 81.633 kg

DRUGS (5)
  1. PAXLOVID [Suspect]
     Active Substance: NIRMATRELVIR\RITONAVIR
     Indication: COVID-19 treatment
     Dosage: RITONAVIR 100MG AND NIRMATRELVIR 300 MG, 2X/DAY FOR 5 DAYS
     Dates: start: 20231218, end: 20231223
  2. CELECOXIB [Concomitant]
     Active Substance: CELECOXIB
     Dosage: UNK
     Dates: start: 20231210
  3. KIRKLAND SIGNATURE CHILDREN^S ALLER TEC [Concomitant]
     Dosage: UNK
     Dates: start: 20231210
  4. NATUREMADE CALCIUM CARBONATE [Concomitant]
     Dosage: UNK
     Dates: start: 20231210
  5. BAYER CITRACAL VITAMIN D [Concomitant]
     Dosage: UNK
     Dates: start: 20231210

REACTIONS (2)
  - COVID-19 [Recovered/Resolved]
  - Disease recurrence [Recovered/Resolved]

NARRATIVE: CASE EVENT DATE: 20231227
